FAERS Safety Report 11809883 (Version 1)
Quarter: 2015Q4

REPORT INFORMATION
  Report Type: Spontaneous
  Country: US (occurrence: None)
  Receive Date: 20151207
  Receipt Date: 20151207
  Transmission Date: 20160305
  Serious: Yes (Death)
  Sender: FDA-Public Use
  Company Number: None

PATIENT
  Age: 85 Year
  Sex: Male

DRUGS (1)
  1. GLEEVEC [Suspect]
     Active Substance: IMATINIB MESYLATE
     Dates: start: 20150423, end: 20150808

REACTIONS (3)
  - Pneumonia [None]
  - Fluid retention [None]
  - Parkinson^s disease [None]

NARRATIVE: CASE EVENT DATE: 20150808
